FAERS Safety Report 23728974 (Version 1)
Quarter: 2024Q2

REPORT INFORMATION
  Report Type: Spontaneous
  Country: FR (occurrence: None)
  Receive Date: 20240410
  Receipt Date: 20240410
  Transmission Date: 20240715
  Serious: Yes (Other)
  Sender: FDA-Public Use
  Company Number: 2024A085703

PATIENT

DRUGS (2)
  1. KOSELUGO [Suspect]
     Active Substance: SELUMETINIB
     Route: 048
     Dates: start: 202312
  2. KOSELUGO [Suspect]
     Active Substance: SELUMETINIB
     Route: 048
     Dates: start: 202312

REACTIONS (6)
  - Toxicity to various agents [Unknown]
  - Pruritus [Unknown]
  - Dermatitis acneiform [Unknown]
  - Abdominal pain [Unknown]
  - Fatigue [Unknown]
  - Rash [Not Recovered/Not Resolved]
